FAERS Safety Report 19953727 (Version 2)
Quarter: 2021Q4

REPORT INFORMATION
  Report Type: Spontaneous
  Country: CA (occurrence: None)
  Receive Date: 20211014
  Receipt Date: 20211206
  Transmission Date: 20220303
  Serious: Yes (Hospitalization)
  Sender: FDA-Public Use
  Company Number: CA-ROCHE-2932914

PATIENT
  Age: 72 Year
  Sex: Female

DRUGS (19)
  1. RITUXIMAB [Suspect]
     Active Substance: RITUXIMAB
     Indication: Rheumatoid arthritis
     Route: 042
  2. ASPIRIN [Concomitant]
     Active Substance: ASPIRIN
     Route: 065
  3. ATORVASTATIN [Concomitant]
     Active Substance: ATORVASTATIN
  4. BENADRYL [Concomitant]
     Active Substance: DIPHENHYDRAMINE HYDROCHLORIDE
     Indication: Premedication
     Route: 048
  5. BETA CAROTENE [Concomitant]
     Active Substance: BETA CAROTENE
  6. CALCIUM [Concomitant]
     Active Substance: CALCIUM
  7. CELEBREX [Concomitant]
     Active Substance: CELECOXIB
  8. COPPER [Concomitant]
     Active Substance: COPPER
  9. FOLIC ACID [Concomitant]
     Active Substance: FOLIC ACID
  10. LANTUS [Concomitant]
     Active Substance: INSULIN GLARGINE
  11. LUTEIN [Concomitant]
     Active Substance: LUTEIN
  12. METHOTREXATE [Concomitant]
     Active Substance: METHOTREXATE
     Route: 048
  13. METHYLPREDNISOLONE SODIUM SUCCINATE [Concomitant]
     Active Substance: METHYLPREDNISOLONE SODIUM SUCCINATE
     Indication: Premedication
     Route: 042
  14. PANTOPRAZOLE SODIUM [Concomitant]
     Active Substance: PANTOPRAZOLE SODIUM
  15. RAMIPRIL [Concomitant]
     Active Substance: RAMIPRIL
  16. REPAGLINIDE [Concomitant]
     Active Substance: REPAGLINIDE
  17. SULFASALAZINE [Concomitant]
     Active Substance: SULFASALAZINE
     Route: 065
  18. TYLENOL [Concomitant]
     Active Substance: ACETAMINOPHEN
     Indication: Premedication
     Route: 048
  19. ZINC [Concomitant]
     Active Substance: ZINC

REACTIONS (4)
  - Colon cancer [Unknown]
  - Intestinal obstruction [Unknown]
  - Postoperative wound infection [Unknown]
  - Transient ischaemic attack [Unknown]
